FAERS Safety Report 7157644-6 (Version None)
Quarter: 2010Q4

REPORT INFORMATION
  Report Type: 
  Country: None (occurrence: None)
  Receive Date: 20101214
  Receipt Date: 20100309
  Transmission Date: 20110411
  Serious: No
  Sender: FDA-Public Use
  Company Number: US-ASTRAZENECA-2010SE10192

PATIENT
  Age: 67 Year
  Sex: Female

DRUGS (5)
  1. CRESTOR [Suspect]
     Indication: BLOOD CHOLESTEROL INCREASED
     Route: 048
     Dates: start: 20100101, end: 20100101
  2. CRESTOR [Suspect]
     Route: 048
     Dates: start: 20100214, end: 20100216
  3. GLIPIZIDE [Concomitant]
  4. METFORMIN [Concomitant]
  5. VITAMIN D [Concomitant]

REACTIONS (4)
  - HEADACHE [None]
  - MYALGIA [None]
  - VASODILATATION [None]
  - WRONG TECHNIQUE IN DRUG USAGE PROCESS [None]
